FAERS Safety Report 12652908 (Version 2)
Quarter: 2016Q3

REPORT INFORMATION
  Report Type: Spontaneous
  Country: NL (occurrence: NL)
  Receive Date: 20160815
  Receipt Date: 20160912
  Transmission Date: 20161109
  Serious: Yes (Other)
  Sender: FDA-Public Use
  Company Number: ALCN2016NL005450

PATIENT
  Age: 1 Year
  Sex: Female
  Weight: 8 kg

DRUGS (2)
  1. CYCLOGYL [Suspect]
     Active Substance: CYCLOPENTOLATE HYDROCHLORIDE
     Indication: OPHTHALMOLOGICAL EXAMINATION
     Dosage: THE DROPS WERE ADMINISTERED TWICE WITH AN INTERVAL OF 10 MINUTES
     Route: 047
     Dates: start: 20160725
  2. CYCLOGYL [Suspect]
     Active Substance: CYCLOPENTOLATE HYDROCHLORIDE
     Dosage: UNK
     Route: 047

REACTIONS (3)
  - Drug effect prolonged [Recovering/Resolving]
  - Seizure [Not Recovered/Not Resolved]
  - Mydriasis [Recovering/Resolving]

NARRATIVE: CASE EVENT DATE: 20160725
